FAERS Safety Report 9799248 (Version 1)
Quarter: 2014Q1

REPORT INFORMATION
  Report Type: Spontaneous
  Country: US (occurrence: None)
  Receive Date: 20140103
  Receipt Date: 20140103
  Transmission Date: 20141002
  Serious: Yes (Disabling)
  Sender: FDA-Public Use
  Company Number: None

PATIENT
  Age: 57 Year
  Sex: Female
  Weight: 74.84 kg

DRUGS (1)
  1. L-THYROXINE [Suspect]
     Indication: HYPOTHYROIDISM
     Dosage: 90 DAY SUPPLY 1 TAB AM
     Route: 048
     Dates: start: 201306, end: 20130830

REACTIONS (10)
  - Product odour abnormal [None]
  - Alopecia [None]
  - Asthenia [None]
  - Disturbance in attention [None]
  - Fatigue [None]
  - Endometrial hyperplasia [None]
  - Pain [None]
  - Impaired driving ability [None]
  - Product quality issue [None]
  - Product substitution issue [None]
